FAERS Safety Report 20539463 (Version 1)
Quarter: 2022Q1

REPORT INFORMATION
  Report Type: Spontaneous
  Country: DE (occurrence: DE)
  Receive Date: 20220302
  Receipt Date: 20220302
  Transmission Date: 20220424
  Serious: Yes (Other)
  Sender: FDA-Public Use
  Company Number: DE-JNJFOC-20210734625

PATIENT
  Sex: Male

DRUGS (2)
  1. ERLEADA [Suspect]
     Active Substance: APALUTAMIDE
     Indication: Product used for unknown indication
     Route: 048
     Dates: start: 201911
  2. GONADORELIN [Suspect]
     Active Substance: GONADORELIN
     Indication: Product used for unknown indication
     Route: 065

REACTIONS (4)
  - Metastases to bone [Unknown]
  - Reproductive tract hypoplasia, male [Unknown]
  - Disturbance in sexual arousal [Unknown]
  - Libido decreased [Unknown]
